FAERS Safety Report 19011540 (Version 2)
Quarter: 2022Q2

REPORT INFORMATION
  Report Type: Spontaneous
  Country: US (occurrence: US)
  Receive Date: 20210316
  Receipt Date: 20220412
  Transmission Date: 20220721
  Serious: Yes (Other)
  Sender: FDA-Public Use
  Company Number: US-AMGEN-USASP2021038201

PATIENT

DRUGS (4)
  1. CARFILZOMIB [Suspect]
     Active Substance: CARFILZOMIB
     Indication: Plasma cell myeloma
     Dosage: UNK
     Route: 065
  2. DEXAMETHASONE [Concomitant]
     Active Substance: DEXAMETHASONE
     Indication: Plasma cell myeloma
     Dosage: UNK
  3. DARATUMUMAB [Concomitant]
     Active Substance: DARATUMUMAB
     Indication: Plasma cell myeloma
     Dosage: UNK
  4. LENALIDOMIDE [Concomitant]
     Active Substance: LENALIDOMIDE
     Indication: Plasma cell myeloma
     Dosage: UNK

REACTIONS (43)
  - Fracture [Unknown]
  - Depressed level of consciousness [Unknown]
  - Syncope [Unknown]
  - Pain in jaw [Unknown]
  - Sleep disorder [Unknown]
  - Weight fluctuation [Unknown]
  - Hypophagia [Unknown]
  - Gastrointestinal disorder [Unknown]
  - Loss of personal independence in daily activities [Unknown]
  - Emotional disorder [Unknown]
  - Back pain [Unknown]
  - Arthralgia [Unknown]
  - Musculoskeletal chest pain [Unknown]
  - Pain [Unknown]
  - Toothache [Unknown]
  - Fatigue [Unknown]
  - Hypoaesthesia [Unknown]
  - Paraesthesia [Unknown]
  - Asthenia [Unknown]
  - Hypersensitivity [Unknown]
  - Mobility decreased [Unknown]
  - Depression [Unknown]
  - Anxiety [Unknown]
  - Fear [Unknown]
  - Pain of skin [Unknown]
  - Pain in extremity [Unknown]
  - Neck pain [Unknown]
  - Joint stiffness [Unknown]
  - Decreased appetite [Unknown]
  - Vomiting [Unknown]
  - Pruritus [Unknown]
  - Neurological symptom [Unknown]
  - Dyspnoea [Unknown]
  - Swelling [Unknown]
  - Infection [Unknown]
  - Visual impairment [Unknown]
  - Mood swings [Unknown]
  - Alopecia [Unknown]
  - Palpitations [Unknown]
  - Skin reaction [Unknown]
  - Adverse event [Unknown]
  - Infusion related reaction [Unknown]
  - Drug ineffective [Unknown]
